FAERS Safety Report 9868064 (Version 1)
Quarter: 2014Q1

REPORT INFORMATION
  Report Type: Spontaneous
  Country: US (occurrence: US)
  Receive Date: 20140204
  Receipt Date: 20140204
  Transmission Date: 20141002
  Serious: Yes (Death, Hospitalization)
  Sender: FDA-Public Use
  Company Number: US-ACTELION-A-US2014-94443

PATIENT
  Age: 51 Year
  Sex: Male

DRUGS (2)
  1. VENTAVIS [Suspect]
     Indication: COR PULMONALE CHRONIC
     Dosage: UNK
     Route: 055
     Dates: end: 20140122
  2. SILDENAFIL [Concomitant]

REACTIONS (2)
  - Hypertension [Fatal]
  - Disease complication [Fatal]
